FAERS Safety Report 7478279-1 (Version None)
Quarter: 2011Q2

REPORT INFORMATION
  Report Type: 
  Country: None (occurrence: None)
  Receive Date: 20110513
  Receipt Date: 20110506
  Transmission Date: 20111010
  Serious: Yes (Hospitalization)
  Sender: FDA-Public Use
  Company Number: PHFR2011GB00967

PATIENT
  Sex: Male

DRUGS (3)
  1. DIAZEPAM [Concomitant]
     Dosage: 5 MG, TID
     Route: 048
  2. HYOSCINE HYDROBROMIDE [Concomitant]
     Dosage: 300 MCG NOCTE
     Route: 048
  3. CLOZARIL [Suspect]
     Dosage: UNK MG,
     Route: 048
     Dates: start: 20010701

REACTIONS (2)
  - NEUTROPHILIA [None]
  - WHITE BLOOD CELL COUNT INCREASED [None]
